FAERS Safety Report 9608550 (Version 1)
Quarter: 2013Q4

REPORT INFORMATION
  Report Type: Spontaneous
  Country: FR (occurrence: FR)
  Receive Date: 20131009
  Receipt Date: 20131009
  Transmission Date: 20140711
  Serious: Yes (Hospitalization)
  Sender: FDA-Public Use
  Company Number: FR-SA-2013SA097398

PATIENT
  Age: 69 Year
  Sex: Male

DRUGS (2)
  1. RIFATER [Suspect]
     Indication: TUBERCULOSIS
     Dosage: DOSE:6 UNIT(S)
     Route: 048
     Dates: start: 201308, end: 20130817
  2. DEXAMBUTOL [Suspect]
     Indication: TUBERCULOSIS
     Route: 048
     Dates: start: 201308, end: 20130817

REACTIONS (8)
  - Pancytopenia [Recovering/Resolving]
  - White blood cell count decreased [Recovering/Resolving]
  - Haemoglobin decreased [Recovering/Resolving]
  - Neutrophil count decreased [Recovering/Resolving]
  - Platelet count decreased [Recovering/Resolving]
  - Reticulocyte count decreased [Recovering/Resolving]
  - Lymphocyte count decreased [Recovering/Resolving]
  - Rash [Recovered/Resolved]
